FAERS Safety Report 8023727-1 (Version None)
Quarter: 2012Q1

REPORT INFORMATION
  Report Type: 
  Country: None (occurrence: None)
  Receive Date: 20120103
  Receipt Date: 20120103
  Transmission Date: 20120608
  Serious: Yes (Hospitalization)
  Sender: FDA-Public Use
  Company Number: None

PATIENT
  Age: 62 Year
  Sex: Male
  Weight: 94.3 kg

DRUGS (2)
  1. CARBOPLATIN [Suspect]
     Indication: NEOPLASM MALIGNANT
     Dosage: 375 MG IV
     Route: 042
     Dates: start: 20111031
  2. CISPLATIN [Suspect]
     Indication: NEOPLASM MALIGNANT
     Dosage: 180 MG IV
     Route: 042
     Dates: start: 20111005, end: 20111005

REACTIONS (4)
  - RENAL FAILURE ACUTE [None]
  - VOMITING [None]
  - DYSPNOEA [None]
  - NAUSEA [None]
